FAERS Safety Report 9286893 (Version 1)
Quarter: 2013Q2

REPORT INFORMATION
  Report Type: Spontaneous
  Country: FR (occurrence: None)
  Receive Date: 20130508
  Receipt Date: 20130508
  Transmission Date: 20140414
  Serious: Yes (Hospitalization, Other)
  Sender: FDA-Public Use
  Company Number: VAL_02507_2013

PATIENT
  Age: 29 Year
  Sex: Female

DRUGS (4)
  1. PARLODEL [Suspect]
     Indication: LACTATION INHIBITION THERAPY
     Route: 048
     Dates: start: 20130208, end: 20130212
  2. MIFEGYNE [Suspect]
     Indication: ABORTION INDUCED
     Route: 048
     Dates: start: 20130207
  3. CYTOTEC [Suspect]
     Indication: ABORTION INDUCED
     Route: 067
     Dates: start: 20130208
  4. CEFAZOLINE [Concomitant]

REACTIONS (5)
  - Posterior reversible encephalopathy syndrome [None]
  - Blindness cortical [None]
  - Hypertensive encephalopathy [None]
  - Grand mal convulsion [None]
  - Cerebral vasoconstriction [None]
